FAERS Safety Report 7639890-8 (Version None)
Quarter: 2011Q3

REPORT INFORMATION
  Report Type: 
  Country: None (occurrence: None)
  Receive Date: 20110727
  Receipt Date: 20110715
  Transmission Date: 20111222
  Serious: Yes (Other)
  Sender: FDA-Public Use
  Company Number: PHEH2008US06596

PATIENT
  Sex: Male

DRUGS (16)
  1. ZOMETA [Suspect]
     Indication: OSTEOPOROSIS
     Dates: start: 20020606
  2. LISINOPRIL [Concomitant]
  3. PLENDIL [Concomitant]
     Dosage: 5 MG, QD
  4. FOSAMAX [Suspect]
     Dates: start: 20010101, end: 20020201
  5. MEXITIL [Concomitant]
     Dosage: 150 MG, TID
  6. PLAVIX [Concomitant]
  7. GLUCOVANCE [Concomitant]
  8. LIPITOR [Concomitant]
  9. CELEXA [Concomitant]
     Dosage: 60 MG, QHS
  10. GLUCOSAMINE [Concomitant]
     Dosage: 500 MG, TID
  11. AREDIA [Suspect]
     Indication: OSTEOPOROSIS PROPHYLAXIS
     Dates: start: 20010101, end: 20020101
  12. TOPROL-XL [Concomitant]
  13. LASIX [Concomitant]
  14. ASPIRIN [Concomitant]
  15. FELDENE [Concomitant]
  16. AMITRIPTYLINE HCL [Concomitant]

REACTIONS (10)
  - ORAL CAVITY FISTULA [None]
  - PAIN [None]
  - OSTEOPOROSIS [None]
  - ABSCESS [None]
  - GASTROOESOPHAGEAL REFLUX DISEASE [None]
  - INJURY [None]
  - NEUROPATHY PERIPHERAL [None]
  - DECREASED INTEREST [None]
  - OSTEONECROSIS OF JAW [None]
  - ANXIETY [None]
